FAERS Safety Report 19449127 (Version 1)
Quarter: 2021Q2

REPORT INFORMATION
  Report Type: Spontaneous
  Country: US (occurrence: US)
  Receive Date: 20210622
  Receipt Date: 20210622
  Transmission Date: 20210717
  Serious: No
  Sender: FDA-Public Use
  Company Number: US-BAUSCH-BL-2021-016780

PATIENT
  Age: 34 Year
  Sex: Female

DRUGS (3)
  1. ARAZLO [Suspect]
     Active Substance: TAZAROTENE
     Indication: SKIN HYPERPIGMENTATION
     Route: 061
     Dates: start: 20210504, end: 20210504
  2. ARAZLO [Suspect]
     Active Substance: TAZAROTENE
     Indication: PRODUCT USE IN UNAPPROVED INDICATION
  3. CLODERM [Concomitant]
     Active Substance: CLOCORTOLONE PIVALATE
     Indication: PRODUCT USED FOR UNKNOWN INDICATION

REACTIONS (4)
  - Product use in unapproved indication [Unknown]
  - Pruritus [Unknown]
  - Erythema [Unknown]
  - Skin irritation [Unknown]

NARRATIVE: CASE EVENT DATE: 20210504
